FAERS Safety Report 7600137-X (Version None)
Quarter: 2011Q3

REPORT INFORMATION
  Report Type: 
  Country: None (occurrence: None)
  Receive Date: 20110711
  Receipt Date: 20110704
  Transmission Date: 20111222
  Serious: Yes (Death, Hospitalization, Other)
  Sender: FDA-Public Use
  Company Number: PHHY2011BR59506

PATIENT
  Sex: Male

DRUGS (1)
  1. DIOVAN [Suspect]
     Indication: HYPERTENSION
     Dosage: TWO TABLETS FO 160 MG, DAILY
     Route: 048

REACTIONS (15)
  - ARRHYTHMIA [None]
  - DIABETES MELLITUS [None]
  - HEADACHE [None]
  - ERYTHEMA [None]
  - PAIN [None]
  - SPEECH DISORDER [None]
  - GAIT DISTURBANCE [None]
  - AUTOIMMUNE DISORDER [None]
  - CARDIAC FAILURE [None]
  - SEPSIS [None]
  - PYREXIA [None]
  - DENGUE FEVER [None]
  - COUGH [None]
  - DECREASED APPETITE [None]
  - INFECTION [None]
